FAERS Safety Report 12194773 (Version 1)
Quarter: 2016Q1

REPORT INFORMATION
  Report Type: Spontaneous
  Country: DE (occurrence: DE)
  Receive Date: 20160321
  Receipt Date: 20160321
  Transmission Date: 20160526
  Serious: Yes (Other)
  Sender: FDA-Public Use
  Company Number: DE-AMGEN-DEUSP2016032443

PATIENT
  Age: 64 Year
  Sex: Male

DRUGS (8)
  1. BICANORM [Concomitant]
     Active Substance: SODIUM BICARBONATE
     Indication: RENAL FAILURE
     Dosage: UNK
     Route: 048
     Dates: start: 2013
  2. XGEVA [Suspect]
     Active Substance: DENOSUMAB
     Indication: METASTASES TO BONE
     Dosage: 120 MG, UNK
     Route: 058
     Dates: start: 20160119
  3. MOXONIDIN [Concomitant]
     Active Substance: MOXONIDINE
     Indication: HYPERTENSION
     Dosage: UNK
     Route: 048
     Dates: start: 2013
  4. TORASEMID [Concomitant]
     Active Substance: TORSEMIDE
     Indication: HYPERTENSION
     Dosage: UNK
     Route: 048
     Dates: start: 2013
  5. RAMIPRIL. [Concomitant]
     Active Substance: RAMIPRIL
     Indication: HYPERTENSION
     Dosage: UNK
     Route: 048
     Dates: start: 2013
  6. AMLODIPIN                          /00972401/ [Concomitant]
     Active Substance: AMLODIPINE BESYLATE
     Indication: HYPERTENSION
     Dosage: UNK
     Route: 048
     Dates: start: 2013
  7. PREDNISOLON                        /00016201/ [Concomitant]
     Active Substance: PREDNISOLONE
     Dosage: 10 MG, UNK
     Route: 048
     Dates: start: 201411
  8. ABIRATERONA [Concomitant]
     Indication: PROSTATE CANCER
     Dosage: 250 MG/ML, UNK
     Route: 048
     Dates: start: 201411

REACTIONS (5)
  - Skin haemorrhage [Recovered/Resolved]
  - Haematochezia [Recovered/Resolved]
  - Peripheral swelling [Recovered/Resolved]
  - Erythema [Recovered/Resolved]
  - Haemorrhage subcutaneous [Recovered/Resolved]

NARRATIVE: CASE EVENT DATE: 20160119
